FAERS Safety Report 9393506 (Version 3)
Quarter: 2014Q2

REPORT INFORMATION
  Report Type: Report from Study
  Country: DE (occurrence: DE)
  Receive Date: 20130710
  Receipt Date: 20140512
  Transmission Date: 20141212
  Serious: Yes (Death)
  Sender: FDA-Public Use
  Company Number: DE-BRISTOL-MYERS SQUIBB COMPANY-19039064

PATIENT
  Age: 79 Year
  Sex: Male

DRUGS (3)
  1. IPILIMUMAB [Suspect]
     Indication: MALIGNANT MELANOMA
     Dosage: 1DF:237 NO UNITS?16MAY13-16MAY13;?10JUN-10JUN13;?3MG/KG
     Route: 042
     Dates: start: 20130516, end: 20130610
  2. NOVALGIN [Concomitant]
     Dosage: 2-2-2
  3. GABAPENTIN [Concomitant]
     Dosage: 1-0-1

REACTIONS (1)
  - Diarrhoea [Fatal]
